FAERS Safety Report 23078725 (Version 3)
Quarter: 2024Q3

REPORT INFORMATION
  Report Type: Report from Study
  Country: AT (occurrence: AT)
  Receive Date: 20231018
  Receipt Date: 20240711
  Transmission Date: 20241016
  Serious: Yes (Other)
  Sender: PFIZER
  Company Number: AT-ROCHE-2925833

PATIENT
  Age: 40 Year
  Sex: Female

DRUGS (70)
  1. ELLENCE [Suspect]
     Active Substance: EPIRUBICIN HYDROCHLORIDE
     Indication: HER2 positive breast cancer
     Dosage: 100 MG/M2
     Route: 042
     Dates: start: 20161005, end: 20161005
  2. TUKYSA [Suspect]
     Active Substance: TUCATINIB
     Indication: HER2 positive breast cancer
     Dosage: 300 MG, 2X/DAY
     Route: 048
     Dates: start: 20210430, end: 20210927
  3. TAXOTERE [Suspect]
     Active Substance: DOCETAXEL
     Indication: HER2 positive breast cancer
     Dosage: 75 MG/M2, EVERY 3 WEEKS
     Route: 042
     Dates: start: 20161020, end: 20161020
  4. TAXOTERE [Suspect]
     Active Substance: DOCETAXEL
     Dosage: 100 MG/M2, EVERY 3 WEEKS
     Route: 042
     Dates: start: 20161201, end: 20161222
  5. TAXOTERE [Suspect]
     Active Substance: DOCETAXEL
     Dosage: 75 MG/M2, EVERY 3 WEEKS
     Route: 042
     Dates: start: 20161111, end: 20161111
  6. TAXOTERE [Suspect]
     Active Substance: DOCETAXEL
     Dosage: 100 MG/M2, EVERY 3 WEEKS
     Route: 042
     Dates: start: 20170112, end: 20170202
  7. HERCEPTIN [Suspect]
     Active Substance: TRASTUZUMAB
     Indication: HER2 positive breast cancer
     Dosage: 8 MG/KG, EVERY 3 WEEKS
     Route: 042
     Dates: start: 20161020, end: 20161020
  8. HERCEPTIN [Suspect]
     Active Substance: TRASTUZUMAB
     Dosage: 8 MG/KG, EVERY 3 WEEKS
     Route: 042
     Dates: start: 20170112, end: 20170112
  9. HERCEPTIN [Suspect]
     Active Substance: TRASTUZUMAB
     Dosage: 6 MG/KG, EVERY 3 WEEKS
     Route: 042
     Dates: start: 20170227, end: 20180108
  10. HERCEPTIN [Suspect]
     Active Substance: TRASTUZUMAB
     Dosage: 6 MG/KG, EVERY 3 WEEKS
     Route: 042
     Dates: start: 20190906, end: 20210409
  11. PERJETA [Suspect]
     Active Substance: PERTUZUMAB
     Indication: HER2 positive breast cancer
     Dosage: 840 MG, EVERY 3 WEEKS
     Route: 042
     Dates: start: 20161020, end: 20161020
  12. PERJETA [Suspect]
     Active Substance: PERTUZUMAB
     Dosage: 420 MG, EVERY 3 WEEKS
     Route: 042
     Dates: start: 20190906, end: 20210409
  13. PERJETA [Suspect]
     Active Substance: PERTUZUMAB
     Dosage: 420 MG, EVERY 3 WEEKS
     Route: 042
     Dates: start: 20170227, end: 20180108
  14. PERJETA [Suspect]
     Active Substance: PERTUZUMAB
     Dosage: 840 MG, EVERY 3 WEEKS
     Route: 042
     Dates: start: 20170112, end: 20170112
  15. CYTOXAN [Suspect]
     Active Substance: CYCLOPHOSPHAMIDE
     Indication: HER2 positive breast cancer
     Dosage: 500 MG/M2
     Route: 042
     Dates: start: 20161005, end: 20161005
  16. XELODA [Suspect]
     Active Substance: CAPECITABINE
     Indication: HER2 positive breast cancer
     Dosage: 1500 MG, 2X/DAY;  DAY1 - DAY 14, TWICE DAILY
     Route: 048
     Dates: start: 20210430, end: 20210903
  17. XELODA [Suspect]
     Active Substance: CAPECITABINE
     Dosage: 1000 MG, 2X/DAY; DAY1 - DAY 14, TWICE DAILY
     Route: 048
     Dates: start: 20210904
  18. KADCYLA [Suspect]
     Active Substance: ADO-TRASTUZUMAB EMTANSINE
     Indication: HER2 positive breast cancer
     Route: 042
     Dates: start: 20180205, end: 20190816
  19. LOPERAMIDE [Suspect]
     Active Substance: LOPERAMIDE
     Dosage: UNK
  20. VITAMINS WITH MINERALS [Concomitant]
     Active Substance: MINERALS\VITAMINS
     Dosage: UNK, 2X/DAY
     Route: 048
     Dates: start: 20161112
  21. BISOPROLOL FUMARATE [Concomitant]
     Active Substance: BISOPROLOL FUMARATE
     Indication: Prophylaxis
     Dosage: 5 MG
     Dates: start: 20170227
  22. LOPERAMIDE HYDROCHLORIDE [Concomitant]
     Active Substance: LOPERAMIDE HYDROCHLORIDE
     Indication: Diarrhoea
     Dosage: 2 MG
     Route: 048
     Dates: start: 20171127
  23. LOPERAMIDE HYDROCHLORIDE [Concomitant]
     Active Substance: LOPERAMIDE HYDROCHLORIDE
     Dates: start: 20171127
  24. HYDROMORPHONE HYDROCHLORIDE [Concomitant]
     Active Substance: HYDROMORPHONE HYDROCHLORIDE
     Indication: Pain prophylaxis
     Dosage: 4 MG, 2X/DAY
     Dates: start: 20210410
  25. HYDROMORPHONE HYDROCHLORIDE [Concomitant]
     Active Substance: HYDROMORPHONE HYDROCHLORIDE
     Dosage: 4 MG, DAILY
     Dates: start: 20210326, end: 20210409
  26. HYDROMORPHONE HYDROCHLORIDE [Concomitant]
     Active Substance: HYDROMORPHONE HYDROCHLORIDE
     Dosage: UNK
     Dates: start: 20210309
  27. HYDROMORPHONE HYDROCHLORIDE [Concomitant]
     Active Substance: HYDROMORPHONE HYDROCHLORIDE
     Dosage: 1.3 MG
     Dates: start: 201706
  28. HYDROMORPHONE HYDROCHLORIDE [Concomitant]
     Active Substance: HYDROMORPHONE HYDROCHLORIDE
     Dosage: 2 MG
     Dates: start: 20190816, end: 20210326
  29. ONDANSETRON HYDROCHLORIDE [Concomitant]
     Active Substance: ONDANSETRON HYDROCHLORIDE
     Indication: Nausea
     Dosage: 8 MG
     Route: 048
     Dates: start: 20181105
  30. ONDANSETRON HYDROCHLORIDE [Concomitant]
     Active Substance: ONDANSETRON HYDROCHLORIDE
     Dates: start: 20181105
  31. RAMIPRIL [Concomitant]
     Active Substance: RAMIPRIL
     Dosage: 10 MG, DAILY
     Route: 048
     Dates: start: 20161222, end: 20170226
  32. RAMIPRIL [Concomitant]
     Active Substance: RAMIPRIL
     Dosage: 15 MG, 1X/DAY
     Route: 048
     Dates: start: 20170227
  33. DEXIBUPROFEN [Concomitant]
     Active Substance: DEXIBUPROFEN
     Indication: Pain prophylaxis
     Dosage: 400 MG, THRICE DAILY
     Dates: start: 20210312
  34. SUCRALAN [Concomitant]
     Indication: Prophylaxis
     Dosage: UNK
     Dates: start: 20161215
  35. SUCRALAN [Concomitant]
     Dosage: 5 ML
     Route: 048
     Dates: start: 201612, end: 20161212
  36. XGEVA [Concomitant]
     Active Substance: DENOSUMAB
     Indication: Prophylaxis
     Dosage: 120 MG
     Dates: start: 20161201
  37. SERTRALINE HYDROCHLORIDE [Concomitant]
     Active Substance: SERTRALINE HYDROCHLORIDE
     Dates: start: 20171016
  38. LAXAGOL [Concomitant]
     Dosage: UNK
     Dates: start: 20201120
  39. KCL [Concomitant]
     Active Substance: POTASSIUM CHLORIDE
     Indication: Prophylaxis
     Dosage: 1200 MG TWICE DAILY
     Dates: start: 20161117, end: 201702
  40. PANTOPRAZOLE SODIUM [Concomitant]
     Active Substance: PANTOPRAZOLE SODIUM
     Dosage: 40 MG TWICE DAILY
     Dates: start: 20161018, end: 20161030
  41. PANTOPRAZOLE SODIUM [Concomitant]
     Active Substance: PANTOPRAZOLE SODIUM
     Dosage: 40 MG TWICE DAILY
     Dates: start: 20161010, end: 20161018
  42. PANTOPRAZOLE SODIUM [Concomitant]
     Active Substance: PANTOPRAZOLE SODIUM
     Dosage: 40 MG, 1X/DAY
     Dates: start: 20161031, end: 20161123
  43. PERFALGAN [Concomitant]
     Active Substance: ACETAMINOPHEN
     Dates: start: 20161208, end: 20161212
  44. LASIX [Concomitant]
     Active Substance: FUROSEMIDE
     Indication: Prophylaxis
     Dates: start: 20161114, end: 201611
  45. LASIX [Concomitant]
     Active Substance: FUROSEMIDE
     Dosage: 40 MG, 1X/DAY
     Dates: start: 20161112, end: 20161114
  46. DEXAMETHASONE [Concomitant]
     Active Substance: DEXAMETHASONE
     Dates: start: 20180817, end: 20180831
  47. CLOBAZAM [Concomitant]
     Active Substance: CLOBAZAM
     Dosage: 5 TABLET
     Dates: start: 20220201
  48. DEXAMETHASONE [Concomitant]
     Active Substance: DEXAMETHASONE
     Indication: Prophylaxis
     Dosage: 8 MG TWICE DAILY
     Dates: start: 20161202, end: 20161203
  49. DEXAMETHASONE [Concomitant]
     Active Substance: DEXAMETHASONE
     Dosage: 8 MG, 1X/DAY
     Dates: start: 20180117, end: 20180122
  50. LIPEGFILGRASTIM [Concomitant]
     Active Substance: LIPEGFILGRASTIM
     Indication: Prophylaxis
     Dates: start: 20170113, end: 20170203
  51. GLANDOMED [Concomitant]
     Dates: start: 20161208, end: 20161222
  52. FENTANYL [Concomitant]
     Active Substance: FENTANYL\FENTANYL CITRATE
     Indication: Pain prophylaxis
     Dosage: FREQ:3 D;
     Dates: start: 201706
  53. GUAR GUM [Concomitant]
     Active Substance: GUAR GUM
     Indication: Prophylaxis
     Dates: start: 20161102, end: 201611
  54. METOCLOPRAMIDE HYDROCHLORIDE [Concomitant]
     Active Substance: METOCLOPRAMIDE HYDROCHLORIDE
     Indication: Nausea
     Dosage: 3 AMPULE
     Dates: end: 20161113
  55. MOVICOL [Concomitant]
     Active Substance: POLYETHYLENE GLYCOL 3350\POTASSIUM CHLORIDE\SODIUM BICARBONATE\SODIUM CHLORIDE
     Indication: Constipation prophylaxis
     Dates: end: 201706
  56. LEVETIRACETAM [Concomitant]
     Active Substance: LEVETIRACETAM
     Dosage: 750 MG TWICE DAILY
     Dates: start: 20220201
  57. BISOPROLOL FUMARATE [Concomitant]
     Active Substance: BISOPROLOL FUMARATE
     Dates: start: 20161117, end: 20170226
  58. AMOXICILLIN\CLAVULANATE POTASSIUM [Concomitant]
     Active Substance: AMOXICILLIN\CLAVULANATE POTASSIUM
     Dosage: 1 G TWICE DAILY
     Dates: start: 20161212, end: 20161216
  59. CEOLAT [Concomitant]
     Indication: Prophylaxis of nausea and vomiting
     Dates: start: 20161112, end: 201702
  60. IMODIUM [Concomitant]
     Active Substance: LOPERAMIDE HYDROCHLORIDE
     Dates: start: 20171106, end: 20171127
  61. FILGRASTIM [Concomitant]
     Active Substance: FILGRASTIM
     Dates: start: 20161208, end: 20161211
  62. XARELTO [Concomitant]
     Active Substance: RIVAROXABAN
     Indication: Thrombosis prophylaxis
     Dates: start: 20161026, end: 201612
  63. HALCION [Concomitant]
     Active Substance: TRIAZOLAM
     Indication: Sleep disorder
     Dates: start: 2016, end: 201702
  64. METOCLOPRAMIDE [Concomitant]
     Active Substance: METOCLOPRAMIDE
     Indication: Prophylaxis of nausea and vomiting
     Dosage: 10 MG, EVERY 3 WEEKS
     Dates: start: 20180205, end: 20190816
  65. HALDOL [Concomitant]
     Active Substance: HALOPERIDOL
     Indication: Prophylaxis of nausea and vomiting
     Dosage: 4 DROPS TWICE DAILY
     Dates: end: 201702
  66. ZOFRAN [Concomitant]
     Active Substance: ONDANSETRON HYDROCHLORIDE
     Indication: Prophylaxis of nausea and vomiting
     Dates: start: 20161123, end: 20170204
  67. SERTRALINE HYDROCHLORIDE [Concomitant]
     Active Substance: SERTRALINE HYDROCHLORIDE
     Dates: end: 201710
  68. TAZOBACTAM [Concomitant]
     Active Substance: TAZOBACTAM
     Dates: start: 20161208, end: 20161212
  69. ARANESP [Concomitant]
     Active Substance: DARBEPOETIN ALFA
     Indication: Anaemia prophylaxis
     Dates: start: 20161201, end: 201701
  70. ALPRAZOLAM [Concomitant]
     Active Substance: ALPRAZOLAM
     Dates: end: 20161117

REACTIONS (1)
  - Hemianopia [Recovered/Resolved]

NARRATIVE: CASE EVENT DATE: 20210924
